FAERS Safety Report 18827988 (Version 2)
Quarter: 2021Q1

REPORT INFORMATION
  Report Type: Report from Study
  Country: IL (occurrence: IL)
  Receive Date: 20210202
  Receipt Date: 20210223
  Transmission Date: 20210419
  Serious: Yes (Hospitalization)
  Sender: FDA-Public Use
  Company Number: IL-EMD SERONO-9216317

PATIENT
  Age: 73 Year
  Sex: Female

DRUGS (1)
  1. REBIF [Suspect]
     Active Substance: INTERFERON BETA-1A
     Indication: PRODUCT USED FOR UNKNOWN INDICATION

REACTIONS (2)
  - Wound infection [Recovering/Resolving]
  - Limb injury [Recovering/Resolving]

NARRATIVE: CASE EVENT DATE: 20210124
